FAERS Safety Report 5011372-1 (Version None)
Quarter: 2006Q2

REPORT INFORMATION
  Report Type: 
  Country: None (occurrence: None)
  Receive Date: 20060523
  Receipt Date: 20060508
  Transmission Date: 20061013
  Serious: Yes (Hospitalization)
  Sender: FDA-Public Use
  Company Number: 2005EU002098

PATIENT
  Age: 24 Year
  Sex: Female

DRUGS (4)
  1. PROGRAF [Suspect]
     Indication: LIVER TRANSPLANT
     Dosage: 3 MG, BID; ORAL, 2 MG, BID; ORAL
     Route: 048
     Dates: start: 19990401
  2. PROGRAF [Suspect]
     Indication: LIVER TRANSPLANT
     Dosage: 3 MG, BID; ORAL, 2 MG, BID; ORAL
     Route: 048
     Dates: start: 20050104
  3. NEORAL [Concomitant]
  4. URSO FALK [Concomitant]

REACTIONS (13)
  - BLOOD BILIRUBIN INCREASED [None]
  - CAESAREAN SECTION [None]
  - DRUG EXPOSURE DURING PREGNANCY [None]
  - HEPATIC ENZYME INCREASED [None]
  - JAUNDICE [None]
  - LIVER FUNCTION TEST ABNORMAL [None]
  - NAUSEA [None]
  - PLATELET COUNT DECREASED [None]
  - PRE-ECLAMPSIA [None]
  - PREGNANCY [None]
  - PREMATURE LABOUR [None]
  - PRURITUS [None]
  - VOMITING [None]
